FAERS Safety Report 11303321 (Version 1)
Quarter: 2015Q3

REPORT INFORMATION
  Report Type: Spontaneous
  Country: US (occurrence: US)
  Receive Date: 20150723
  Receipt Date: 20150723
  Transmission Date: 20151125
  Serious: No
  Sender: FDA-Public Use
  Company Number: US-JNJFOC-20150508806

PATIENT
  Age: 51 Year
  Sex: Male

DRUGS (2)
  1. ZYRTEC [Suspect]
     Active Substance: CETIRIZINE HYDROCHLORIDE
     Indication: NASOPHARYNGITIS
     Dosage: 3 TABLETS ALL AT ONE TIME
     Route: 048
     Dates: start: 20150512
  2. ZYRTEC [Suspect]
     Active Substance: CETIRIZINE HYDROCHLORIDE
     Indication: HYPERSENSITIVITY
     Dosage: 3 TABLETS ALL AT ONE TIME
     Route: 048
     Dates: start: 20150512

REACTIONS (2)
  - Overdose [Unknown]
  - Off label use [Unknown]
